FAERS Safety Report 4871531-5 (Version None)
Quarter: 2005Q4

REPORT INFORMATION
  Report Type: 
  Country: None (occurrence: None)
  Receive Date: 20051229
  Receipt Date: 20051214
  Transmission Date: 20060501
  Serious: Yes (Other)
  Sender: FDA-Public Use
  Company Number: US200512002525

PATIENT
  Age: 32 Year
  Sex: Female

DRUGS (4)
  1. HUMULIN U [Suspect]
     Indication: DIABETES MELLITUS
     Dates: start: 19860101
  2. HUMULIN U [Suspect]
     Indication: DIABETES MELLITUS
     Dates: start: 20051001
  3. ALDOMET [Concomitant]
  4. FERROUS SULFATE (FERROUS SULFATE FORMULATION) [Concomitant]

REACTIONS (9)
  - BLOOD GLUCOSE FLUCTUATION [None]
  - DIABETES MELLITUS INADEQUATE CONTROL [None]
  - DIABETIC NEPHROPATHY [None]
  - DRUG EXPOSURE DURING PREGNANCY [None]
  - DRUG INEFFECTIVE [None]
  - HYPERTENSION [None]
  - PREGNANCY [None]
  - PULMONARY HYPERTENSION [None]
  - SLEEP APNOEA SYNDROME [None]
